FAERS Safety Report 22591409 (Version 4)
Quarter: 2025Q2

REPORT INFORMATION
  Report Type: Spontaneous
  Country: US (occurrence: US)
  Receive Date: 20230612
  Receipt Date: 20250408
  Transmission Date: 20250717
  Serious: Yes (Hospitalization, Other)
  Sender: BIOMARIN
  Company Number: US-SA-SAC20230608000499

PATIENT

DRUGS (3)
  1. LARONIDASE [Suspect]
     Active Substance: LARONIDASE
     Indication: Mucopolysaccharidosis I
     Dosage: 23.2 (UNITS NOT KNOWN), QW
     Route: 042
     Dates: start: 20060426
  2. LARONIDASE [Suspect]
     Active Substance: LARONIDASE
     Indication: Mucopolysaccharidosis
     Dosage: 23.2 (UNITS NOT KNOWN), QW
     Route: 042
     Dates: start: 200604
  3. LARONIDASE [Suspect]
     Active Substance: LARONIDASE
     Dosage: 23.2 (UNITS NOT KNOWN), QW
     Route: 042
     Dates: start: 202001

REACTIONS (7)
  - Seizure like phenomena [Not Recovered/Not Resolved]
  - Spinal cord compression [Not Recovered/Not Resolved]
  - Seizure [Recovered/Resolved]
  - Obstructive airways disorder [Not Recovered/Not Resolved]
  - Dyspnoea [Recovering/Resolving]
  - Illness [Unknown]
  - Product dose omission issue [Unknown]

NARRATIVE: CASE EVENT DATE: 20230101
